FAERS Safety Report 12473082 (Version 4)
Quarter: 2016Q4

REPORT INFORMATION
  Report Type: Report from Study
  Country: US (occurrence: US)
  Receive Date: 20160616
  Receipt Date: 20161202
  Transmission Date: 20170207
  Serious: Yes (Hospitalization)
  Sender: FDA-Public Use
  Company Number: US-PFIZER INC-2016286819

PATIENT
  Age: 57 Year
  Sex: Male
  Weight: 85 kg

DRUGS (33)
  1. REFRESH PM /01323301/ [Concomitant]
     Indication: BLEPHARITIS
     Dosage: APPLY 1/2 INCH STRIP TO AFFECTED EYES AT BEDTIME PRN
     Route: 047
     Dates: start: 20160315
  2. ALCLOMETASONE [Concomitant]
     Active Substance: ALCLOMETASONE
     Indication: DERMATITIS ACNEIFORM
     Dosage: APPLY DAILY TO AFFECTED AREAS
     Dates: start: 201306
  3. JARDIANCE [Concomitant]
     Active Substance: EMPAGLIFLOZIN
     Indication: HYPERGLYCAEMIA
     Dosage: 10 MG, DAILY
     Route: 048
     Dates: start: 20160222
  4. BIOTONE /08381501/ [Concomitant]
     Indication: DRY MOUTH
     Dosage: UNK, AS NEEDED
     Route: 048
     Dates: start: 201202
  5. BACTROBAN [Concomitant]
     Active Substance: MUPIROCIN\MUPIROCIN CALCIUM
     Indication: DERMATITIS ACNEIFORM
     Dosage: APPLY PRN TO AFFECTED AREAS
     Dates: start: 201306
  6. LOTEMAX [Concomitant]
     Active Substance: LOTEPREDNOL ETABONATE
     Dosage: EACH EYE FOUR TIMES DAILY PRN X 2 WEEKS
     Dates: start: 20160510
  7. DEXAMETHASONE. [Suspect]
     Active Substance: DEXAMETHASONE
     Indication: BRAIN OEDEMA
     Dosage: 0.5 MG (1 TAB), DAILY
     Route: 048
     Dates: start: 2013
  8. KEPPRA [Concomitant]
     Active Substance: LEVETIRACETAM
     Indication: SEIZURE
     Dosage: 500 MG, 2X/DAY
     Route: 048
     Dates: start: 20111227
  9. SARNA (CAMPHOR (NATURAL)\MENTHOL) [Concomitant]
     Active Substance: CAMPHOR (NATURAL)\MENTHOL
     Indication: PRURITUS
     Dosage: MENTHOL (0.5%) AND CAMPHOR (0.5%) LOTION (SARNA LOTION) APPLY SPARINGLY DAILY TO AFFECTED AREAS
     Dates: start: 2014
  10. ONGLYZA [Concomitant]
     Active Substance: SAXAGLIPTIN HYDROCHLORIDE
     Indication: HYPERGLYCAEMIA
     Dosage: 5 MG, DAILY
     Route: 048
     Dates: start: 20160119
  11. SYSTANE NIGHTTIME [Concomitant]
     Active Substance: MINERAL OIL\PETROLATUM
     Indication: DRY EYE
     Dosage: APPLY NIGHTLY TO EYES PRN
     Dates: start: 2014
  12. CICLOPIROX. [Concomitant]
     Active Substance: CICLOPIROX
     Indication: NAIL INFECTION
     Dosage: APPLY DAILY TO AFFECTED AREAS
     Dates: start: 201306
  13. POVIDONE-IODINE. [Concomitant]
     Active Substance: POVIDONE-IODINE
     Indication: NAIL INFECTION
     Dosage: APPLY DAILY TO AFFECTED AREAS
     Route: 061
     Dates: start: 201306
  14. PHOSPHO 250 NEUTRAL [Concomitant]
     Indication: PROPHYLAXIS
     Dosage: 2 DF, 2X/DAY
     Route: 048
     Dates: start: 2013
  15. TRIAMCINOLONE [Concomitant]
     Active Substance: TRIAMCINOLONE
     Indication: DERMATITIS ACNEIFORM
     Dosage: APPLY THIN FILM DAILY TO AFFECTED AREAS
     Dates: start: 201306
  16. DIPHENHYDRAMINE. [Concomitant]
     Active Substance: DIPHENHYDRAMINE
     Indication: PROPHYLAXIS
     Dosage: 50 MG, ONCE 1 HOUR PRIOR TO MRI
     Route: 048
     Dates: start: 20160411, end: 20160411
  17. DIPHENHYDRAMINE. [Concomitant]
     Active Substance: DIPHENHYDRAMINE
     Dosage: 25 MG, WEEKLY 30 MINUTES PRIOR TO TEMSIROLIMUS INFUSION
     Route: 042
     Dates: start: 20151116
  18. LOTEMAX [Concomitant]
     Active Substance: LOTEPREDNOL ETABONATE
     Indication: BLEPHARITIS
     Dosage: 2X/DAY X2WEEKS
     Dates: start: 20160510
  19. METFORMIN [Concomitant]
     Active Substance: METFORMIN HYDROCHLORIDE
     Indication: HYPERGLYCAEMIA
     Dosage: 500 MG, 2X/DAY (HOLD FOR 48 HOURS PRIOR TO MRI)
     Route: 048
     Dates: start: 20151201
  20. HYDROXYZINE [Concomitant]
     Active Substance: HYDROXYZINE\HYDROXYZINE HYDROCHLORIDE
     Indication: PRURITUS
     Dosage: 25 MG, AS NEEDED Q6H
     Route: 048
     Dates: start: 2014, end: 2015
  21. REFRESH TEARS [Concomitant]
     Active Substance: CARBOXYMETHYLCELLULOSE SODIUM
     Indication: DRY EYE
     Dosage: 1-2 DROPS PER EYE Q 4 HRS PRN
     Dates: start: 2014
  22. CLINDAMYCIN PHOSPHATE. [Concomitant]
     Active Substance: CLINDAMYCIN PHOSPHATE
     Indication: DERMATITIS ACNEIFORM
     Dosage: APPLY SPARINGLY TO AFFECTED AREAS DAILY PRN
     Dates: start: 201306
  23. NEOMYCIN/ POLYMYXIN /DEXAMETHASONE [Concomitant]
     Indication: BLEPHARITIS
     Dosage: APPLY 1/2 INCH STRIP TO AFFECTED EYES AT BEDTIME PRN
     Route: 047
     Dates: start: 20160315
  24. PENTAMIDINE [Concomitant]
     Active Substance: PENTAMIDINE
     Indication: ANTIFUNGAL PROPHYLAXIS
     Dosage: 300 MG, Q 4-5 WEEKS
     Route: 055
     Dates: start: 201306
  25. TEMSIROLIMUS [Suspect]
     Active Substance: TEMSIROLIMUS
     Indication: GLIOBLASTOMA
     Dosage: 115 MG, WEEKLY
     Route: 042
     Dates: start: 20151012, end: 20160111
  26. TEMSIROLIMUS [Suspect]
     Active Substance: TEMSIROLIMUS
     Dosage: 115 MG, WEEKLY
     Route: 042
     Dates: start: 20160115
  27. PERIFOSINE [Suspect]
     Active Substance: PERIFOSINE
     Indication: GLIOBLASTOMA
     Dosage: 100 MG, DAILY
     Route: 048
     Dates: start: 20151007, end: 20160110
  28. PERIFOSINE [Suspect]
     Active Substance: PERIFOSINE
     Dosage: 100 MG, DAILY
     Route: 048
     Dates: start: 20160114, end: 20160602
  29. NORVASC [Concomitant]
     Active Substance: AMLODIPINE BESYLATE
     Indication: HYPERTENSION
     Dosage: 10 MG, DAILY
     Route: 048
     Dates: start: 2013
  30. LOPID [Concomitant]
     Active Substance: GEMFIBROZIL
     Indication: BLOOD CHOLESTEROL INCREASED
     Dosage: 600 MG, DAILY
     Route: 048
     Dates: start: 2013
  31. ZYRTEC [Concomitant]
     Active Substance: CETIRIZINE HYDROCHLORIDE
     Indication: DERMATITIS ACNEIFORM
     Dosage: 10 MG, DAILY
     Route: 048
     Dates: start: 201306
  32. SILVER SULPHADIAZINE [Concomitant]
     Indication: FUNGAL SKIN INFECTION
     Dosage: APPLY PRN TO AFFECTED AREAS
     Dates: start: 201406
  33. ERYTHROMYCIN BENZOYL PEROXIDE [Concomitant]
     Indication: DERMATITIS ACNEIFORM
     Dosage: APPLY SPARINGLY TO AFFECTED AREAS TWICE DAILY
     Route: 061
     Dates: start: 201602

REACTIONS (1)
  - Lung infection [Recovered/Resolved]

NARRATIVE: CASE EVENT DATE: 20160530
